FAERS Safety Report 19136819 (Version 4)
Quarter: 2021Q4

REPORT INFORMATION
  Report Type: Report from Study
  Country: US (occurrence: US)
  Receive Date: 20210414
  Receipt Date: 20211221
  Transmission Date: 20220303
  Serious: Yes (Other)
  Sender: FDA-Public Use
  Company Number: US-TAKEDA-US201515868

PATIENT
  Age: 52 Year
  Sex: Female
  Weight: 76 kg

DRUGS (20)
  1. PARATHYROID HORMONE [Suspect]
     Active Substance: PARATHYROID HORMONE
     Indication: Hypoparathyroidism
     Dosage: 50 MICROGRAM
     Route: 058
     Dates: start: 20150814
  2. PARATHYROID HORMONE [Suspect]
     Active Substance: PARATHYROID HORMONE
     Indication: Hypoparathyroidism
     Dosage: 50 MICROGRAM
     Route: 058
     Dates: start: 20150814
  3. PARATHYROID HORMONE [Suspect]
     Active Substance: PARATHYROID HORMONE
     Indication: Hypoparathyroidism
     Dosage: 50 MICROGRAM
     Route: 058
     Dates: start: 20150814
  4. ALBUTEROL [Concomitant]
     Active Substance: ALBUTEROL
     Indication: Asthma
     Dosage: 108 MICROGRAM
  5. SIMVASTATIN [Concomitant]
     Active Substance: SIMVASTATIN
     Indication: Hyperlipidaemia
     Dosage: 20 MG, 1X/DAY:QD
     Dates: start: 20100618
  6. PREVACID [Concomitant]
     Active Substance: LANSOPRAZOLE
     Indication: Gastrooesophageal reflux disease
     Dosage: 30 MG, 2X/DAY:BID
     Dates: start: 20110418
  7. RANITIDINE [Concomitant]
     Active Substance: RANITIDINE
     Indication: Gastrooesophageal reflux disease
     Dosage: 150 MG, 2X/DAY:BID
     Dates: start: 20150206
  8. BUDESONIDE\FORMOTEROL [Concomitant]
     Active Substance: BUDESONIDE\FORMOTEROL
     Indication: Asthma
     Dosage: 2 PUFFS EVERY 12 HOURS
     Dates: start: 20150508
  9. BUSPIRONE [Concomitant]
     Active Substance: BUSPIRONE HYDROCHLORIDE
     Indication: Depression
     Dosage: 15 MG, 2X/DAY:BID
     Dates: start: 20150508
  10. LEVOTHYROXINE [Concomitant]
     Active Substance: LEVOTHYROXINE
     Indication: Hypothyroidism
     Dosage: 75 MICROGRAM, QD
     Dates: start: 20150812
  11. LEVOTHYROXINE [Concomitant]
     Active Substance: LEVOTHYROXINE
     Dosage: 88 MICROGRAM, QD
     Dates: start: 20150715, end: 20150812
  12. POTASSIUM CHLORIDE [Concomitant]
     Active Substance: POTASSIUM CHLORIDE
     Indication: Hypokalaemia
     Dosage: 20 MICROGRAM, QD
     Dates: start: 20150522
  13. QUETIAPINE [Concomitant]
     Active Substance: QUETIAPINE
     Indication: Depression
     Dosage: 300 MG, 1X/DAY:QD
     Dates: start: 20150508
  14. TOPIRAMATE [Concomitant]
     Active Substance: TOPIRAMATE
     Indication: Migraine
     Dosage: 100 MG, 3X/DAY:TID
     Dates: start: 20150720
  15. DULOXETINE [Concomitant]
     Active Substance: DULOXETINE
     Indication: Depression
     Dosage: 20 MG, 2X/DAY:BID
  16. LORATADINE [Concomitant]
     Active Substance: LORATADINE
     Indication: Product used for unknown indication
     Dosage: 10 ML, 1X/DAY:QD
     Dates: start: 20151008
  17. CHOLECALCIFEROL [Concomitant]
     Active Substance: CHOLECALCIFEROL
     Indication: Hypoparathyroidism
     Dosage: 50000 IU, 1X/WEEK
     Dates: start: 20140415
  18. CHLORTHALIDONE [Concomitant]
     Active Substance: CHLORTHALIDONE
     Indication: Hypoparathyroidism
     Dosage: 12.5 MG, EVERY OTHER DAY
     Dates: start: 20150526
  19. AMILORIDE [Concomitant]
     Active Substance: AMILORIDE
     Indication: Hypoparathyroidism
     Dosage: 5 MG, 1X/DAY:QD
     Dates: start: 20151027
  20. AMILORIDE [Concomitant]
     Active Substance: AMILORIDE
     Dosage: 5 MG, EVERY OTHER DAY ALTERNATING WITH CHLORTHALIDONE
     Dates: start: 20150526, end: 20151027

REACTIONS (2)
  - Neuropathy peripheral [Recovering/Resolving]
  - Cystitis [Recovered/Resolved]

NARRATIVE: CASE EVENT DATE: 20150926
